FAERS Safety Report 15575918 (Version 1)
Quarter: 2018Q4

REPORT INFORMATION
  Report Type: Spontaneous
  Country: FR (occurrence: FR)
  Receive Date: 20181101
  Receipt Date: 20181101
  Transmission Date: 20190205
  Serious: Yes (Other)
  Sender: FDA-Public Use
  Company Number: FR-TEVA-2018-FR-971573

PATIENT
  Age: 51 Year
  Sex: Female

DRUGS (3)
  1. AMOXICILLINE [Suspect]
     Active Substance: AMOXICILLIN
     Dosage: DOSAGE NOT KNOWN
     Route: 048
  2. MIOREL (THIOCOLCHICOSIDE) [Suspect]
     Active Substance: THIOCOLCHICOSIDE
     Route: 048
  3. KETOPROFENE [Suspect]
     Active Substance: KETOPROFEN
     Route: 048

REACTIONS (1)
  - Toxic skin eruption [Recovered/Resolved]
